FAERS Safety Report 9871314 (Version 3)
Quarter: 2014Q3

REPORT INFORMATION
  Report Type: Spontaneous
  Country: US (occurrence: US)
  Receive Date: 20140205
  Receipt Date: 20140722
  Transmission Date: 20150326
  Serious: Yes (Other)
  Sender: FDA-Public Use
  Company Number: US-BAYER-2014-015020

PATIENT
  Age: 35 Year
  Sex: Female
  Weight: 99.77 kg

DRUGS (3)
  1. MIRENA [Suspect]
     Active Substance: LEVONORGESTREL
     Indication: CONTRACEPTION
     Dosage: 20 MCG/24HR, CONT
     Route: 015
     Dates: start: 20060620, end: 20081024
  2. PERCOCET [Concomitant]
     Active Substance: ACETAMINOPHEN\OXYCODONE HYDROCHLORIDE
     Dosage: 5 MG, UNK
  3. TRIAMTERENE AND HYDROCHLOROTHIAZIDE [Concomitant]
     Active Substance: HYDROCHLOROTHIAZIDE\TRIAMTERENE
     Indication: HYPERTENSION
     Dosage: 37.5-25 MG ONCE A DAILY
     Route: 048
     Dates: start: 2006

REACTIONS (16)
  - Injury [None]
  - Medical device complication [None]
  - Medical device discomfort [None]
  - Internal injury [None]
  - Scar [None]
  - Genital haemorrhage [None]
  - Depressed mood [None]
  - Depression [None]
  - Device issue [None]
  - Uterine perforation [None]
  - Stress [None]
  - Anxiety [None]
  - Device dislocation [None]
  - Emotional distress [None]
  - Pain [None]
  - Fear [None]
